FAERS Safety Report 24155451 (Version 1)
Quarter: 2024Q3

REPORT INFORMATION
  Report Type: Spontaneous
  Country: CO (occurrence: CO)
  Receive Date: 20240731
  Receipt Date: 20240731
  Transmission Date: 20241017
  Serious: Yes (Other)
  Sender: SANDOZ
  Company Number: CO-002147023-NVSC2024CO153862

PATIENT
  Age: 39 Year
  Sex: Female
  Weight: 60 kg

DRUGS (5)
  1. LAPATINIB [Suspect]
     Active Substance: LAPATINIB
     Dosage: 750 MG, QD
     Route: 065
  2. LAPATINIB [Suspect]
     Active Substance: LAPATINIB
     Indication: Breast cancer metastatic
     Dosage: 1000 MG, QD (BY MOUTH)
     Route: 048
     Dates: start: 20230618
  3. ZOLEDRONIC ACID [Suspect]
     Active Substance: ZOLEDRONIC ACID
     Indication: Breast cancer
     Dosage: UNK, QMO
     Route: 065
  4. TRASTUZUMAB [Concomitant]
     Active Substance: TRASTUZUMAB
     Indication: Product used for unknown indication
     Dosage: UNK
     Route: 065
  5. VINORELBINE [Concomitant]
     Active Substance: VINORELBINE TARTRATE
     Indication: Product used for unknown indication
     Dosage: UNK
     Route: 065

REACTIONS (20)
  - Mitral valve incompetence [Unknown]
  - Metastases to bone [Unknown]
  - Skin exfoliation [Not Recovered/Not Resolved]
  - Skin lesion [Recovering/Resolving]
  - Nodule [Unknown]
  - Pulmonary mass [Unknown]
  - Mass [Unknown]
  - Hernia [Unknown]
  - Neutrophil count abnormal [Unknown]
  - Lymphocyte count abnormal [Unknown]
  - Eosinophil count abnormal [Unknown]
  - Mean platelet volume abnormal [Unknown]
  - Inflammation [Not Recovered/Not Resolved]
  - Pustule [Not Recovered/Not Resolved]
  - Limb injury [Not Recovered/Not Resolved]
  - Dry skin [Not Recovered/Not Resolved]
  - Skin fissures [Not Recovered/Not Resolved]
  - Pruritus [Not Recovered/Not Resolved]
  - Rash erythematous [Not Recovered/Not Resolved]
  - Rash [Not Recovered/Not Resolved]

NARRATIVE: CASE EVENT DATE: 20230709
